FAERS Safety Report 6696002-5 (Version None)
Quarter: 2010Q2

REPORT INFORMATION
  Report Type: 
  Country: None (occurrence: None)
  Receive Date: 20100426
  Receipt Date: 20100412
  Transmission Date: 20101027
  Serious: Yes (Other)
  Sender: FDA-Public Use
  Company Number: US-ASTRAZENECA-2009UW14384

PATIENT
  Sex: Male

DRUGS (4)
  1. SEROQUEL [Suspect]
     Route: 048
     Dates: start: 19991117
  2. LITHOBID [Concomitant]
     Dates: start: 20000418
  3. VASOTEC [Concomitant]
     Dates: start: 20000705
  4. TRAZODONE HCL [Concomitant]
     Dates: start: 20000330

REACTIONS (2)
  - DIABETES MELLITUS [None]
  - VITH NERVE PARALYSIS [None]
